FAERS Safety Report 5968807-7 (Version None)
Quarter: 2008Q4

REPORT INFORMATION
  Report Type: 
  Country: None (occurrence: None)
  Receive Date: 20081121
  Receipt Date: 20081121
  Transmission Date: 20090506
  Serious: Yes (Life-Threatening, Hospitalization)
  Sender: FDA-Public Use
  Company Number: None

PATIENT
  Age: 43 Year
  Sex: Female
  Weight: 61.2356 kg

DRUGS (1)
  1. CHANTIX [Suspect]
     Indication: SMOKING CESSATION THERAPY
     Dosage: 1 THEN 2XDAILEY PO
     Route: 048
     Dates: start: 20081011, end: 20081026

REACTIONS (12)
  - AMNESIA [None]
  - COGNITIVE DISORDER [None]
  - DEPRESSION [None]
  - DISSOCIATION [None]
  - DYSPHEMIA [None]
  - FALL [None]
  - GAIT DISTURBANCE [None]
  - HYPERSOMNIA [None]
  - HYPOTENSION [None]
  - INSOMNIA [None]
  - SCREAMING [None]
  - SUICIDAL BEHAVIOUR [None]
